FAERS Safety Report 23576223 (Version 2)
Quarter: 2024Q1

REPORT INFORMATION
  Report Type: Spontaneous
  Country: US (occurrence: US)
  Receive Date: 20240228
  Receipt Date: 20240315
  Transmission Date: 20240409
  Serious: Yes (Death)
  Sender: FDA-Public Use
  Company Number: US-PFIZER INC-202400049823

PATIENT
  Age: 75 Year
  Sex: Male

DRUGS (1)
  1. VYNDAMAX [Suspect]
     Active Substance: TAFAMIDIS
     Indication: Cardiac disorder
     Dosage: ONCE A DAY, EVERY DAY HE WAS AT HOME, NOT IN HOSPITAL

REACTIONS (7)
  - Chronic left ventricular failure [Fatal]
  - Cardiomyopathy [Fatal]
  - Hypertension [Fatal]
  - Nephropathy [Fatal]
  - Amyloidosis [Fatal]
  - Hyperlipidaemia [Fatal]
  - Disease progression [Fatal]

NARRATIVE: CASE EVENT DATE: 20240101
